FAERS Safety Report 6340546-2 (Version None)
Quarter: 2009Q3

REPORT INFORMATION
  Report Type: 
  Country: None (occurrence: None)
  Receive Date: 20090902
  Receipt Date: 20090820
  Transmission Date: 20100115
  Serious: Yes (Hospitalization)
  Sender: FDA-Public Use
  Company Number: 2009AP003398

PATIENT
  Sex: Male

DRUGS (7)
  1. CLARITHROMYCIN [Suspect]
     Indication: ASTHMA
     Dosage: TRPL
     Route: 064
  2. AMINOPHYLLIN [Suspect]
     Indication: ASTHMA
     Dosage: TRPL
     Route: 064
  3. AMOXICILLIN [Suspect]
     Indication: ASTHMA
     Dosage: TRPL
     Route: 064
  4. ATROVENT [Suspect]
     Indication: ASTHMA
     Dosage: TRPL
     Route: 064
  5. HYDROCORTONE [Suspect]
     Indication: ASTHMA
     Dosage: TRPL
     Route: 064
  6. MAGNESIUM (MAGNESIUM) [Suspect]
     Indication: ASTHMA
     Dosage: TRPL
     Route: 064
  7. SALBUTAMOL (SALBUTAMOL) [Suspect]
     Indication: ASTHMA
     Dosage: 5 MG; 6XD

REACTIONS (4)
  - CAESAREAN SECTION [None]
  - FOETAL DISTRESS SYNDROME [None]
  - MATERNAL DRUGS AFFECTING FOETUS [None]
  - TACHYCARDIA FOETAL [None]
